FAERS Safety Report 8557946-2 (Version None)
Quarter: 2012Q3

REPORT INFORMATION
  Report Type: 
  Country: None (occurrence: None)
  Receive Date: 20120801
  Receipt Date: 20120727
  Transmission Date: 20120928
  Serious: Yes (Other)
  Sender: FDA-Public Use
  Company Number: PHEH2012US013800

PATIENT
  Sex: Female
  Weight: 115.65 kg

DRUGS (4)
  1. OXCARBAZEPINE [Concomitant]
     Indication: CONVULSION
     Dosage: 150 MG, BID
     Route: 048
  2. GABAPENTIN [Concomitant]
     Indication: CONVULSION
     Dosage: 600 MG, TID
     Route: 048
  3. GILENYA [Suspect]
     Indication: MULTIPLE SCLEROSIS
     Dosage: 0.5 MG, QD
     Route: 048
     Dates: start: 20120709
  4. FLEXERIL [Concomitant]
     Indication: MUSCLE SPASTICITY
     Dosage: 10 MG, TID
     Route: 048

REACTIONS (4)
  - PARAESTHESIA [None]
  - CENTRAL NERVOUS SYSTEM LESION [None]
  - GENERAL PHYSICAL CONDITION ABNORMAL [None]
  - BALANCE DISORDER [None]
